FAERS Safety Report 25138984 (Version 2)
Quarter: 2025Q2

REPORT INFORMATION
  Report Type: Spontaneous
  Country: IT (occurrence: IT)
  Receive Date: 20250331
  Receipt Date: 20250430
  Transmission Date: 20250717
  Serious: Yes (Other)
  Sender: EISAI
  Company Number: None

PATIENT
  Age: 52 Year
  Sex: Male
  Weight: 110 kg

DRUGS (5)
  1. LENVATINIB [Suspect]
     Active Substance: LENVATINIB
     Indication: Renal cell carcinoma
  2. KEYTRUDA [Suspect]
     Active Substance: PEMBROLIZUMAB
     Indication: Renal cell carcinoma
     Dosage: KEYTRUDA ADMINISTRATION DATES WITH RELATED BATCHES: ?MAR/29/2024: X027852 ?MAY/10/2024: Y000399 ?JUN/21/2024: Y005479 ?SEP/19/2024: Y010228 ?OCT/29/2024: Y013374 ?DEC/10/2024: Y015107 ?JAN/23/2025: Y017868?MAR/04/2025: Y018059
     Dates: start: 20240329, end: 20250304
  3. BISOPROLOL FUMARATE [Concomitant]
     Active Substance: BISOPROLOL FUMARATE
     Indication: Atrial fibrillation
  4. XANAX [Concomitant]
     Active Substance: ALPRAZOLAM
     Indication: Product used for unknown indication
  5. MICARDIS [Concomitant]
     Active Substance: TELMISARTAN
     Indication: Product used for unknown indication

REACTIONS (7)
  - Hypothyroidism [Recovering/Resolving]
  - Pruritus [Recovered/Resolved]
  - Hypophonesis [Recovered/Resolved]
  - Asthenia [Recovering/Resolving]
  - Weight decreased [Not Recovered/Not Resolved]
  - Diarrhoea [Not Recovered/Not Resolved]
  - Palmar-plantar erythrodysaesthesia syndrome [Recovering/Resolving]

NARRATIVE: CASE EVENT DATE: 20240329
